FAERS Safety Report 15941173 (Version 2)
Quarter: 2019Q1

REPORT INFORMATION
  Report Type: Spontaneous
  Country: US (occurrence: US)
  Receive Date: 20190208
  Receipt Date: 20190227
  Transmission Date: 20190417
  Serious: Yes (Other)
  Sender: FDA-Public Use
  Company Number: US-ASTRAZENECA-2018SF34697

PATIENT
  Age: 676 Month
  Sex: Male

DRUGS (2)
  1. PRILOSEC [Suspect]
     Active Substance: OMEPRAZOLE MAGNESIUM
     Route: 048
     Dates: start: 1998
  2. PRILOSEC [Suspect]
     Active Substance: OMEPRAZOLE MAGNESIUM
     Route: 048
     Dates: start: 1998

REACTIONS (2)
  - Acute kidney injury [Unknown]
  - Renal injury [Unknown]

NARRATIVE: CASE EVENT DATE: 201003
